FAERS Safety Report 8295057-4 (Version None)
Quarter: 2012Q2

REPORT INFORMATION
  Report Type: 
  Country: None (occurrence: None)
  Receive Date: 20120416
  Receipt Date: 20120402
  Transmission Date: 20120825
  Serious: Yes (Hospitalization, Other)
  Sender: FDA-Public Use
  Company Number: 2012P1011848

PATIENT
  Age: 70 Year
  Sex: Female
  Weight: 52.1637 kg

DRUGS (4)
  1. XANAX [Suspect]
  2. SOMA [Concomitant]
  3. VICODIN [Concomitant]
  4. FENTANYL [Suspect]
     Indication: BACK PAIN
     Dosage: 1 PATCH;Q72HR, TDER
     Route: 062

REACTIONS (11)
  - DEVICE LEAKAGE [None]
  - PNEUMONIA [None]
  - NERVOUSNESS [None]
  - PRURITUS [None]
  - FEELING JITTERY [None]
  - LOSS OF CONSCIOUSNESS [None]
  - SCRATCH [None]
  - TREMOR [None]
  - ACCIDENTAL OVERDOSE [None]
  - DRUG WITHDRAWAL SYNDROME [None]
  - HYPERHIDROSIS [None]
